FAERS Safety Report 20818877 (Version 1)
Quarter: 2022Q2

REPORT INFORMATION
  Report Type: Spontaneous
  Country: US (occurrence: None)
  Receive Date: 20220511
  Receipt Date: 20220511
  Transmission Date: 20220720
  Serious: Yes (unspecified)
  Sender: FDA-Public Use
  Company Number: None

PATIENT
  Age: 57 Year
  Sex: Male
  Weight: 116.2 kg

DRUGS (5)
  1. TRANEXAMIC ACID [Suspect]
     Active Substance: TRANEXAMIC ACID
     Indication: Intraoperative care
  2. TRANEXAMIC ACID [Suspect]
     Active Substance: TRANEXAMIC ACID
     Indication: Prophylaxis
  3. TRANEXAMIC ACID [Suspect]
     Active Substance: TRANEXAMIC ACID
     Indication: Haemorrhage
  4. SEVOFLURANE [Concomitant]
     Active Substance: SEVOFLURANE
     Dates: start: 20220407, end: 20220407
  5. MEPIVACAINE HYDROCHLORIDE [Concomitant]
     Active Substance: MEPIVACAINE HYDROCHLORIDE
     Dates: start: 20220407, end: 20220407

REACTIONS (10)
  - Extrasystoles [None]
  - Bradycardia [None]
  - Dyspnoea [None]
  - Cough [None]
  - Wheezing [None]
  - Laryngospasm [None]
  - Irregular breathing [None]
  - Muscle twitching [None]
  - Oxygen saturation decreased [None]
  - Seizure [None]

NARRATIVE: CASE EVENT DATE: 20220407
